FAERS Safety Report 9915542 (Version 1)
Quarter: 2014Q1

REPORT INFORMATION
  Report Type: Spontaneous
  Country: US (occurrence: US)
  Receive Date: 20140221
  Receipt Date: 20140221
  Transmission Date: 20141002
  Serious: No
  Sender: FDA-Public Use
  Company Number: US-009507513-1402USA008285

PATIENT
  Sex: Female

DRUGS (2)
  1. DULERA [Suspect]
     Indication: EMPHYSEMA
     Dosage: UNK
     Route: 055
     Dates: start: 20131106
  2. ADVAIR [Concomitant]

REACTIONS (2)
  - Drug effect delayed [Unknown]
  - Product quality issue [Unknown]
